FAERS Safety Report 10190932 (Version 1)
Quarter: 2014Q2

REPORT INFORMATION
  Report Type: Spontaneous
  Country: US (occurrence: US)
  Receive Date: 20140523
  Receipt Date: 20140523
  Transmission Date: 20141212
  Serious: Yes (Other)
  Sender: FDA-Public Use
  Company Number: US-ELI_LILLY_AND_COMPANY-US201405005002

PATIENT
  Sex: Female

DRUGS (2)
  1. FORTEO [Suspect]
     Indication: BONE DISORDER
     Dosage: UNK
     Route: 065
     Dates: start: 201203
  2. FORTEO [Suspect]
     Dosage: UNK
     Route: 065
     Dates: start: 201203

REACTIONS (1)
  - Retinal detachment [Unknown]
